FAERS Safety Report 8585679 (Version 16)
Quarter: 2016Q3

REPORT INFORMATION
  Report Type: Spontaneous
  Country: US (occurrence: US)
  Receive Date: 20120530
  Receipt Date: 20160914
  Transmission Date: 20161109
  Serious: Yes (Hospitalization, Other)
  Sender: FDA-Public Use
  Company Number: US-GLAXOSMITHKLINE-A0972199A

PATIENT
  Age: 55 Year
  Sex: Female
  Weight: 51 kg

DRUGS (19)
  1. FLOLAN [Suspect]
     Active Substance: EPOPROSTENOL SODIUM
     Dosage: UNK
  2. FLOLAN [Suspect]
     Active Substance: EPOPROSTENOL SODIUM
     Indication: COR PULMONALE CHRONIC
     Dosage: UNK
     Dates: start: 20131028
  3. FLOLAN [Suspect]
     Active Substance: EPOPROSTENOL SODIUM
     Indication: PULMONARY HYPERTENSION
     Dosage: 19 NG/KG/MIN (CONCENTRATION 30,000 NG/ML, PUMP RATE 54 ML/DAY, VIAL STRENGTH 1.5 MG), CO
     Dates: start: 20131028
  4. VELETRI [Suspect]
     Active Substance: EPOPROSTENOL
     Indication: COR PULMONALE CHRONIC
     Route: 042
     Dates: start: 20130703
  5. ADEMPAS [Concomitant]
     Active Substance: RIOCIGUAT
  6. FLOLAN [Suspect]
     Active Substance: EPOPROSTENOL SODIUM
     Dosage: UNK
     Dates: start: 19990106
  7. FLOLAN [Suspect]
     Active Substance: EPOPROSTENOL SODIUM
     Dosage: UNK
  8. FLOLAN [Suspect]
     Active Substance: EPOPROSTENOL SODIUM
     Dosage: 19 NG/KG/MIN CONTINUOUS
     Route: 042
     Dates: start: 20131028
  9. FLOLAN [Suspect]
     Active Substance: EPOPROSTENOL SODIUM
     Dosage: 19 NG/KG/MIN, CO
  10. FLOLAN [Suspect]
     Active Substance: EPOPROSTENOL SODIUM
     Dosage: UNK, CO
     Dates: start: 20131028
  11. FLOLAN [Suspect]
     Active Substance: EPOPROSTENOL SODIUM
     Dosage: UNK, CO
     Dates: start: 20131028
  12. FLOLAN [Suspect]
     Active Substance: EPOPROSTENOL SODIUM
     Dosage: 19 NG/KG/MIN (CONCENTRATION 30,000 NG/ML, PUMP RATE 54 ML/DAY, VIAL STRENGTH 1.5 MG), CO
     Dates: start: 20131028
  13. FLOLAN [Suspect]
     Active Substance: EPOPROSTENOL SODIUM
     Dosage: 19 DF, CO
     Route: 042
     Dates: start: 19990604
  14. FLOLAN [Suspect]
     Active Substance: EPOPROSTENOL SODIUM
     Dosage: 19 NG/KG/MIN, CO
     Dates: start: 20131028
  15. FLOLAN [Suspect]
     Active Substance: EPOPROSTENOL SODIUM
     Indication: COR PULMONALE CHRONIC
     Dosage: 19 NG/KG/MIN CONTINUOUSLYCONCENTRATION: 30,000 NG/MLPUMP RATE NOT REPORTEDVIAL STRENGTH 1.5MG
     Route: 042
     Dates: start: 19990106
  16. FLOLAN [Suspect]
     Active Substance: EPOPROSTENOL SODIUM
     Dosage: UNK
     Dates: start: 19990106
  17. FLOLAN [Suspect]
     Active Substance: EPOPROSTENOL SODIUM
     Indication: PULMONARY HYPERTENSION
     Dosage: UNK
     Dates: start: 19990106
  18. REVATIO [Concomitant]
     Active Substance: SILDENAFIL CITRATE
  19. COUMADIN [Concomitant]
     Active Substance: WARFARIN SODIUM

REACTIONS (17)
  - Device connection issue [Unknown]
  - Headache [Recovered/Resolved]
  - Malaise [Not Recovered/Not Resolved]
  - Endoscopy [Unknown]
  - Diarrhoea [Recovered/Resolved]
  - Cyst aspiration [Unknown]
  - Pain in jaw [Recovered/Resolved]
  - Nasopharyngitis [Recovered/Resolved]
  - Catheter site erythema [Recovered/Resolved]
  - Device related infection [Recovered/Resolved]
  - Catheter site infection [Unknown]
  - Cough [Not Recovered/Not Resolved]
  - Cardiac operation [Unknown]
  - Cardiac disorder [Unknown]
  - Pain in extremity [Recovered/Resolved]
  - Influenza [Unknown]
  - Bacterial infection [Unknown]

NARRATIVE: CASE EVENT DATE: 20120326
